FAERS Safety Report 8857605 (Version 2)
Quarter: 2013Q1

REPORT INFORMATION
  Report Type: Spontaneous
  Country: US (occurrence: US)
  Receive Date: 20121024
  Receipt Date: 20130306
  Transmission Date: 20140127
  Serious: Yes (Other)
  Sender: FDA-Public Use
  Company Number: US-PFIZER INC-2012261984

PATIENT
  Age: 76 Year
  Sex: Female
  Weight: 90.7 kg

DRUGS (11)
  1. GLUCOTROL XL [Suspect]
     Indication: DIABETES MELLITUS
     Dosage: 5 MG, DAILY
     Route: 048
  2. GLUCOTROL XL [Suspect]
     Dosage: 2.5 MG, DAILY
     Route: 048
  3. GLUCOTROL XL [Suspect]
     Dosage: SPLITTING 2.5 MG TABLETS INTO HALF DAILY
     Route: 048
  4. OXYBUTYNIN [Suspect]
     Indication: URINARY INCONTINENCE
     Dosage: 15 MG, DAILY
     Dates: end: 201210
  5. LOVASTATIN [Concomitant]
     Indication: LIVER DISORDER
     Dosage: 20 MG, DAILY
  6. CELEXA [Concomitant]
     Indication: DEPRESSION
     Dosage: 10 MG, DAILY
  7. FOSAMAX [Concomitant]
     Indication: OSTEOPOROSIS
     Dosage: 70 MG, WEEKLY
  8. ASPIRIN [Concomitant]
     Indication: CARDIAC DISORDER
     Dosage: 81 MG, DAILY
  9. LOPRESSOR [Concomitant]
     Indication: BLOOD PRESSURE ABNORMAL
     Dosage: 20 MG, DAILY
  10. CLOTRIMAZOLE [Concomitant]
     Indication: TINEA INFECTION
     Dosage: UNK
  11. VITAMINS [Concomitant]
     Dosage: UNK

REACTIONS (3)
  - Urinary incontinence [Unknown]
  - Dizziness [Recovered/Resolved]
  - Drug prescribing error [Unknown]
